FAERS Safety Report 8899881 (Version 1)
Quarter: 2012Q4

REPORT INFORMATION
  Report Type: 
  Country: IT (occurrence: IT)
  Receive Date: 20121109
  Receipt Date: 20121109
  Transmission Date: 20130627
  Serious: Yes (Hospitalization)
  Sender: FDA-Public Use
  Company Number: PHHY2012IT102696

PATIENT
  Age: 34 Year
  Sex: Male

DRUGS (6)
  1. OLANZAPINE [Suspect]
     Indication: MENTAL DISORDER
     Dosage: 1 DF
     Route: 048
     Dates: start: 20121018, end: 20121018
  2. TEGRETOL [Suspect]
     Indication: MENTAL DISORDER
     Dosage: 1 DF
     Route: 048
     Dates: start: 20121018, end: 20121018
  3. DEPAKIN [Suspect]
     Indication: MENTAL DISORDER
     Dosage: 1 DF
     Route: 048
     Dates: start: 20121018, end: 20121018
  4. LARGACTIL [Suspect]
     Indication: MENTAL DISORDER
     Dosage: 1 DF
     Route: 048
     Dates: start: 20121018, end: 20121018
  5. HALDOL [Suspect]
     Indication: MENTAL DISORDER
     Dosage: 1 DF
     Route: 048
     Dates: start: 20121018, end: 20121018
  6. TRIATEC [Suspect]
     Indication: HYPERTENSION
     Dosage: 1 DF

REACTIONS (2)
  - Intentional self-injury [Unknown]
  - Blood calcium abnormal [Unknown]
